FAERS Safety Report 4922217-X (Version None)
Quarter: 2006Q1

REPORT INFORMATION
  Report Type: 
  Country: None (occurrence: None)
  Receive Date: 20060224
  Receipt Date: 20051017
  Transmission Date: 20060701
  Serious: Yes (Hospitalization)
  Sender: FDA-Public Use
  Company Number: US-MERCK-0510USA07654

PATIENT
  Age: 58 Year
  Sex: Female
  Weight: 70 kg

DRUGS (18)
  1. VIOXX [Suspect]
     Indication: OSTEOARTHRITIS
     Route: 048
     Dates: start: 20020214, end: 20040923
  2. ZOCOR [Concomitant]
     Indication: BLOOD CHOLESTEROL INCREASED
     Route: 065
     Dates: start: 20020315, end: 20020901
  3. ZOCOR [Concomitant]
     Indication: BLOOD TRIGLYCERIDES INCREASED
     Route: 065
     Dates: start: 20020315, end: 20020901
  4. ZANAFLEX [Concomitant]
     Indication: MUSCLE RELAXANT THERAPY
     Route: 065
     Dates: start: 20020708, end: 20021101
  5. CARISOPRODOL [Concomitant]
     Indication: MUSCLE SPASMS
     Route: 065
     Dates: start: 20020805, end: 20021101
  6. BEXTRA [Concomitant]
     Indication: ARTHRITIS
     Route: 065
     Dates: start: 20040316, end: 20040401
  7. LIPITOR [Concomitant]
     Indication: BLOOD CHOLESTEROL INCREASED
     Route: 065
     Dates: start: 19970825
  8. WELCHOL [Concomitant]
     Indication: BLOOD CHOLESTEROL INCREASED
     Route: 048
     Dates: start: 20020916
  9. WELCHOL [Concomitant]
     Indication: BLOOD TRIGLYCERIDES INCREASED
     Route: 048
     Dates: start: 20020916
  10. ZETIA [Concomitant]
     Indication: BLOOD CHOLESTEROL INCREASED
     Route: 065
     Dates: start: 20030204, end: 20030401
  11. LOPRESSOR [Concomitant]
     Indication: HYPERTENSION
     Route: 048
     Dates: start: 20000301
  12. ALLEGRA [Concomitant]
     Indication: HYPERSENSITIVITY
     Route: 065
  13. PROMETHAZINE [Concomitant]
     Indication: HYPERSENSITIVITY
     Route: 065
  14. ACIPHEX [Concomitant]
     Indication: GASTROOESOPHAGEAL REFLUX DISEASE
     Route: 065
  15. SONATA [Concomitant]
     Indication: INSOMNIA
     Route: 048
  16. ALTACE [Concomitant]
     Indication: HYPERTENSION
     Route: 065
     Dates: start: 20020704
  17. PRAVACHOL [Concomitant]
     Route: 048
  18. XANAX [Concomitant]
     Route: 048

REACTIONS (21)
  - ACUTE MYOCARDIAL INFARCTION [None]
  - CARDIAC DISORDER [None]
  - CARDIOGENIC SHOCK [None]
  - CATARACT [None]
  - CORONARY ARTERY DISEASE [None]
  - COUGH [None]
  - DEPRESSION [None]
  - DYSPHAGIA [None]
  - DYSPHONIA [None]
  - DYSPNOEA [None]
  - GLAUCOMA [None]
  - GRAFT INFECTION [None]
  - INTERMITTENT CLAUDICATION [None]
  - LUNG HYPERINFLATION [None]
  - MASS [None]
  - OBSTRUCTIVE AIRWAYS DISORDER [None]
  - PARAESTHESIA [None]
  - SINUS BRADYCARDIA [None]
  - TOOTH INFECTION [None]
  - VOCAL CORD PARESIS [None]
  - VULVOVAGINAL MYCOTIC INFECTION [None]
